FAERS Safety Report 5682636-3 (Version None)
Quarter: 2008Q1

REPORT INFORMATION
  Report Type: 
  Country: None (occurrence: None)
  Receive Date: 20080327
  Receipt Date: 20080122
  Transmission Date: 20080703
  Serious: No
  Sender: FDA-Public Use
  Company Number: US-BRISTOL-MYERS SQUIBB COMPANY-14049258

PATIENT
  Age: 72 Year
  Sex: Female
  Weight: 75 kg

DRUGS (3)
  1. ORENCIA [Suspect]
     Indication: RHEUMATOID ARTHRITIS
     Dosage: LOT NO. FOR ALL 12 INFUSIONS:MUE S31A,MUE S32A,7F 23806,MUK 539A,7J 2893,7H 26114
     Route: 042
     Dates: start: 20070501
  2. ACCUPRIL [Concomitant]
  3. LOPRESSOR [Concomitant]

REACTIONS (1)
  - DRUG INEFFECTIVE [None]
